FAERS Safety Report 13027798 (Version 1)
Quarter: 2016Q4

REPORT INFORMATION
  Report Type: Spontaneous
  Country: GB (occurrence: GB)
  Receive Date: 20161214
  Receipt Date: 20161214
  Transmission Date: 20170207
  Serious: Yes (Disabling)
  Sender: FDA-Public Use
  Company Number: GB-TEVA-717914ACC

PATIENT
  Age: 75 Year
  Sex: Female
  Weight: 74 kg

DRUGS (16)
  1. AMLODIPINE [Concomitant]
     Active Substance: AMLODIPINE BESYLATE
  2. BISOPROLOL [Concomitant]
     Active Substance: BISOPROLOL
  3. FERROUS SULFATE. [Concomitant]
     Active Substance: FERROUS SULFATE
  4. ASPIRIN. [Concomitant]
     Active Substance: ASPIRIN
  5. HUMALOG MIX75/25 [Concomitant]
     Active Substance: INSULIN LISPRO
  6. CALCIUM ACETATE. [Concomitant]
     Active Substance: CALCIUM ACETATE
  7. DEXCEL-PHARMA ISOSORBIDE MONONITRATE [Concomitant]
  8. BUMETANIDE. [Concomitant]
     Active Substance: BUMETANIDE
  9. GABAPENTIN. [Concomitant]
     Active Substance: GABAPENTIN
  10. LANSOPRAZOLE. [Concomitant]
     Active Substance: LANSOPRAZOLE
  11. WARFARIN [Suspect]
     Active Substance: WARFARIN
     Indication: PULMONARY EMBOLISM
     Dosage: ADJUSTED TO INTERNATIONAL NORMALISED RATIO TARGET OF 2.5(MAINTENANCE DOSE WAS BETWEEN 4-5MG OD)
     Route: 048
     Dates: start: 20161006, end: 20161118
  12. ATORVASTATIN [Concomitant]
     Active Substance: ATORVASTATIN
  13. PERINDOPRIL [Concomitant]
     Active Substance: PERINDOPRIL
  14. FLUOXETINE [Concomitant]
     Active Substance: FLUOXETINE HYDROCHLORIDE
  15. FRAGMIN [Concomitant]
     Active Substance: DALTEPARIN SODIUM
     Dates: start: 20161006, end: 20161017
  16. SODIUM BICARBONATE. [Concomitant]
     Active Substance: SODIUM BICARBONATE

REACTIONS (2)
  - Headache [Recovered/Resolved]
  - Night sweats [Recovered/Resolved]

NARRATIVE: CASE EVENT DATE: 20161007
